FAERS Safety Report 7940845-4 (Version None)
Quarter: 2011Q4

REPORT INFORMATION
  Report Type: 
  Country: None (occurrence: None)
  Receive Date: 20111128
  Receipt Date: 20111122
  Transmission Date: 20120403
  Serious: Yes (Other)
  Sender: FDA-Public Use
  Company Number: US-PFIZER INC-2011286587

PATIENT
  Sex: Female
  Weight: 72.562 kg

DRUGS (9)
  1. EFFEXOR [Suspect]
     Indication: DEPRESSION
     Dosage: 100 MG, DAILY
  2. EFFEXOR [Suspect]
     Dosage: 150 MG, DAILY
     Route: 048
     Dates: start: 20110101, end: 20110101
  3. EFFEXOR [Suspect]
     Dosage: HALF TABLET UNKNOWN DOSE DAILY
     Dates: start: 20111114, end: 20111115
  4. EFFEXOR [Suspect]
     Dosage: 50 MG, ALTERNATE DAY
     Dates: start: 20110101
  5. EFFEXOR [Suspect]
     Dosage: 50 MG, DAILY
     Dates: start: 20110101, end: 20110101
  6. PRILOSEC [Concomitant]
     Indication: GASTROOESOPHAGEAL REFLUX DISEASE
  7. VALSARTAN [Concomitant]
     Indication: HYPERTENSION
     Dosage: 80 MG, DAILY
     Route: 048
  8. PRILOSEC [Concomitant]
     Indication: GASTRIC ULCER
     Dosage: 20 MG, DAILY
     Route: 048
  9. EFFEXOR [Suspect]
     Dosage: 100 MG, DAILY
     Dates: start: 20110101, end: 20110101

REACTIONS (4)
  - RHEUMATOID ARTHRITIS [None]
  - RASH ERYTHEMATOUS [None]
  - SJOGREN'S SYNDROME [None]
  - BLOOD PRESSURE INCREASED [None]
